FAERS Safety Report 4413169-X (Version None)
Quarter: 2004Q3

REPORT INFORMATION
  Report Type: 
  Country: None (occurrence: None)
  Receive Date: 20040802
  Receipt Date: 20040623
  Transmission Date: 20050211
  Serious: Yes (Hospitalization)
  Sender: FDA-Public Use
  Company Number: JP-GLAXOSMITHKLINE-B0336928A

PATIENT
  Age: 68 Year
  Sex: Female
  Weight: 38 kg

DRUGS (8)
  1. VALTREX [Suspect]
     Indication: HERPES ZOSTER
     Dosage: 1000MG PER DAY
     Route: 048
     Dates: start: 20040619, end: 20040619
  2. NU-LOTAN [Concomitant]
     Dosage: 25MG PER DAY
     Route: 048
  3. ALESION [Concomitant]
     Dosage: 20MG PER DAY
     Route: 048
  4. SERMION [Concomitant]
     Dosage: 1TAB PER DAY
     Route: 048
  5. RENAGEL [Concomitant]
     Dosage: 1500MG PER DAY
     Route: 048
  6. ROCALTROL [Concomitant]
     Dosage: 1MCG PER DAY
     Route: 048
  7. YODEL S [Concomitant]
     Dosage: 1TAB PER DAY
     Route: 048
  8. HEMODIALYSIS [Concomitant]

REACTIONS (3)
  - DELIRIUM [None]
  - DYSKINESIA [None]
  - SPEECH DISORDER [None]
